FAERS Safety Report 7620690-X (Version None)
Quarter: 2011Q3

REPORT INFORMATION
  Report Type: 
  Country: None (occurrence: None)
  Receive Date: 20110719
  Receipt Date: 20110712
  Transmission Date: 20111222
  Serious: Yes (Death)
  Sender: FDA-Public Use
  Company Number: US-GLAXOSMITHKLINE-A0920427A

PATIENT
  Age: 70 Year
  Sex: Male

DRUGS (1)
  1. VOTRIENT [Suspect]
     Indication: RENAL CANCER
     Dosage: 800MG PER DAY
     Route: 048
     Dates: start: 20100701

REACTIONS (8)
  - CONFUSIONAL STATE [None]
  - FATIGUE [None]
  - DECREASED APPETITE [None]
  - DISEASE PROGRESSION [None]
  - NAUSEA [None]
  - CONVULSION [None]
  - NERVOUS SYSTEM DISORDER [None]
  - ASTHENIA [None]
